FAERS Safety Report 20742890 (Version 1)
Quarter: 2022Q2

REPORT INFORMATION
  Report Type: Spontaneous
  Country: US (occurrence: US)
  Receive Date: 20220424
  Receipt Date: 20220424
  Transmission Date: 20220721
  Serious: Yes (Life-Threatening, Hospitalization, Other)
  Sender: FDA-Public Use
  Company Number: US-BRISTOL-MYERS SQUIBB COMPANY-2022-022628

PATIENT
  Age: 85 Year
  Sex: Male

DRUGS (1)
  1. NIVOLUMAB [Suspect]
     Active Substance: NIVOLUMAB
     Indication: Malignant melanoma
     Dosage: DAY 1 AND 15 OF 28 DAY CYCLES
     Route: 065

REACTIONS (7)
  - Rhabdomyolysis [Unknown]
  - Immune-mediated hyperthyroidism [Unknown]
  - Keratitis [Unknown]
  - Hypertransaminasaemia [Unknown]
  - Immune-mediated myocarditis [Unknown]
  - Pleural effusion [Unknown]
  - Myasthenia gravis [Unknown]
